FAERS Safety Report 6196007-7 (Version None)
Quarter: 2009Q2

REPORT INFORMATION
  Report Type: 
  Country: None (occurrence: None)
  Receive Date: 20090520
  Receipt Date: 20030707
  Transmission Date: 20091009
  Serious: Yes (Death)
  Sender: FDA-Public Use
  Company Number: NL-ROCHE-597572

PATIENT
  Sex: Male

DRUGS (4)
  1. CAPECITABINE [Suspect]
     Route: 048
     Dates: start: 20030529, end: 20030612
  2. CAPECITABINE [Suspect]
     Route: 048
     Dates: start: 20030619, end: 20030629
  3. METOCLOPRAMIDE [Concomitant]
  4. ZOPICLONE [Concomitant]

REACTIONS (1)
  - SEPSIS [None]
